FAERS Safety Report 12388721 (Version 1)
Quarter: 2016Q2

REPORT INFORMATION
  Report Type: Spontaneous
  Country: US (occurrence: None)
  Receive Date: 20160519
  Receipt Date: 20160519
  Transmission Date: 20160815
  Serious: No
  Sender: FDA-Public Use
  Company Number: None

PATIENT
  Age: 89 Year
  Sex: Male
  Weight: 92.9 kg

DRUGS (1)
  1. ALLOPURINOL. [Suspect]
     Active Substance: ALLOPURINOL
     Indication: GOUT
     Route: 048
     Dates: start: 20080513

REACTIONS (5)
  - Fall [None]
  - Cognitive disorder [None]
  - Dysarthria [None]
  - Confusional state [None]
  - Leukopenia [None]

NARRATIVE: CASE EVENT DATE: 20160330
